FAERS Safety Report 11285056 (Version 2)
Quarter: 2015Q3

REPORT INFORMATION
  Report Type: Report from Study
  Country: US (occurrence: US)
  Receive Date: 20150720
  Receipt Date: 20150807
  Transmission Date: 20151125
  Serious: Yes (Hospitalization)
  Sender: FDA-Public Use
  Company Number: US-GILEAD-2015-0163518

PATIENT
  Age: 53 Year
  Sex: Male

DRUGS (3)
  1. AMBRISENTAN [Suspect]
     Active Substance: AMBRISENTAN
     Indication: PRODUCT USED FOR UNKNOWN INDICATION
     Dosage: 10 MG, QD
     Route: 065
     Dates: start: 20121031, end: 20150731
  2. COUMADIN [Concomitant]
     Active Substance: WARFARIN SODIUM
  3. VIAGRA [Concomitant]
     Active Substance: SILDENAFIL CITRATE

REACTIONS (5)
  - Nasopharyngitis [Unknown]
  - Cardiac disorder [Recovering/Resolving]
  - Hypotension [Unknown]
  - Dyspnoea [Recovering/Resolving]
  - Dizziness [Unknown]
